FAERS Safety Report 23665941 (Version 1)
Quarter: 2024Q1

REPORT INFORMATION
  Report Type: Report from Study
  Country: US (occurrence: US)
  Receive Date: 20240323
  Receipt Date: 20240323
  Transmission Date: 20240409
  Serious: Yes (Death, Other)
  Sender: FDA-Public Use
  Company Number: US-GILEAD-2024-0666383

PATIENT
  Age: 77 Year
  Sex: Female

DRUGS (1)
  1. AZTREONAM LYSINE [Suspect]
     Active Substance: AZTREONAM LYSINE
     Indication: Bronchiectasis
     Dosage: 75 MG, TID VIA ALTERA NEBULIZER FOR 28 DAYS ON AND 28 DAYS OFF
     Route: 055
     Dates: start: 20201113

REACTIONS (4)
  - Respiratory arrest [Fatal]
  - Interstitial lung disease [Fatal]
  - Sarcoidosis [Fatal]
  - Off label use [Unknown]

NARRATIVE: CASE EVENT DATE: 20201113
